FAERS Safety Report 7747756-8 (Version None)
Quarter: 2011Q3

REPORT INFORMATION
  Report Type: 
  Country: None (occurrence: None)
  Receive Date: 20110913
  Receipt Date: 20110706
  Transmission Date: 20111222
  Serious: Yes (Life-Threatening, Hospitalization)
  Sender: FDA-Public Use
  Company Number: ES-ACTELION-A-CH2011-48078

PATIENT
  Sex: Female
  Weight: 8.7 kg

DRUGS (1)
  1. ZAVESCA [Suspect]
     Indication: NIEMANN-PICK DISEASE
     Dosage: 50 MG, BID
     Route: 048
     Dates: start: 20070201, end: 20110701

REACTIONS (8)
  - ASPIRATION BRONCHIAL [None]
  - PNEUMONIA [None]
  - GASTROINTESTINAL TUBE INSERTION [None]
  - EYE INFECTION [None]
  - DIARRHOEA [None]
  - DYSPHAGIA [None]
  - THROMBOCYTOPENIA [None]
  - BARIUM SWALLOW [None]
